FAERS Safety Report 11463656 (Version 1)
Quarter: 2015Q3

REPORT INFORMATION
  Report Type: Spontaneous
  Country: US (occurrence: US)
  Receive Date: 20150831
  Receipt Date: 20150831
  Transmission Date: 20151125
  Serious: No
  Sender: FDA-Public Use
  Company Number: US-ELI_LILLY_AND_COMPANY-US201104002171

PATIENT
  Age: 49 Year
  Sex: Female

DRUGS (7)
  1. AMLODIPINE BESYLATE. [Concomitant]
     Active Substance: AMLODIPINE BESYLATE
  2. VITAMIN B12 [Concomitant]
     Active Substance: CYANOCOBALAMIN
  3. CYMBALTA [Suspect]
     Active Substance: DULOXETINE HYDROCHLORIDE
     Indication: FIBROMYALGIA
     Dosage: 60 MG, QD
     Dates: end: 20110331
  4. OXYCONTIN [Concomitant]
     Active Substance: OXYCODONE HYDROCHLORIDE
     Indication: PAIN
  5. FLEXERIL [Concomitant]
     Active Substance: CYCLOBENZAPRINE HYDROCHLORIDE
     Indication: PAIN
  6. XANAX [Concomitant]
     Active Substance: ALPRAZOLAM
  7. PERCOCET [Concomitant]
     Active Substance: ACETAMINOPHEN\OXYCODONE HYDROCHLORIDE
     Indication: PAIN

REACTIONS (9)
  - Crying [Unknown]
  - Drug withdrawal syndrome [Unknown]
  - Impaired self-care [Unknown]
  - Dizziness [Unknown]
  - Frustration [Unknown]
  - Dysstasia [Unknown]
  - Feeling abnormal [Unknown]
  - Nausea [Unknown]
  - Headache [Unknown]
